FAERS Safety Report 23341100 (Version 3)
Quarter: 2024Q4

REPORT INFORMATION
  Report Type: Spontaneous
  Country: ES (occurrence: ES)
  Receive Date: 20231227
  Receipt Date: 20241231
  Transmission Date: 20250115
  Serious: Yes (Death, Other)
  Sender: JOHNSON AND JOHNSON
  Company Number: ES-JNJFOC-20231255371

PATIENT

DRUGS (6)
  1. TREMFYA [Suspect]
     Active Substance: GUSELKUMAB
     Indication: Psoriatic arthropathy
     Route: 065
  2. TREMFYA [Suspect]
     Active Substance: GUSELKUMAB
     Indication: Rheumatoid arthritis
  3. TREMFYA [Suspect]
     Active Substance: GUSELKUMAB
     Indication: Spondyloarthropathy
  4. TREMFYA [Suspect]
     Active Substance: GUSELKUMAB
     Indication: Seronegative arthritis
  5. TREMFYA [Suspect]
     Active Substance: GUSELKUMAB
     Indication: Arthritis enteropathic
  6. TREMFYA [Suspect]
     Active Substance: GUSELKUMAB
     Indication: Ankylosing spondylitis

REACTIONS (22)
  - Death [Fatal]
  - Graves^ disease [Unknown]
  - Poisoning [Unknown]
  - Surgery [Unknown]
  - Neoplasm [Unknown]
  - Drug ineffective [Unknown]
  - Connective tissue disorder [Unknown]
  - Angiopathy [Unknown]
  - Respiratory disorder [Unknown]
  - Renal disorder [Unknown]
  - Reproductive tract disorder [Unknown]
  - Cardiac disorder [Unknown]
  - Injury [Unknown]
  - Hepatobiliary disease [Unknown]
  - Blood disorder [Unknown]
  - Gastrointestinal disorder [Unknown]
  - Eye disorder [Unknown]
  - Administration site reaction [Unknown]
  - Infection [Unknown]
  - Nervous system disorder [Unknown]
  - Procedural complication [Unknown]
  - Medical procedure [Unknown]
